FAERS Safety Report 10017739 (Version 1)
Quarter: 2014Q1

REPORT INFORMATION
  Report Type: Spontaneous
  Country: US (occurrence: US)
  Receive Date: 20140318
  Receipt Date: 20140318
  Transmission Date: 20141002
  Serious: Yes (Hospitalization)
  Sender: FDA-Public Use
  Company Number: US-BRISTOL-MYERS SQUIBB COMPANY-18742718

PATIENT
  Age: 67 Year
  Sex: Male

DRUGS (1)
  1. ERBITUX [Suspect]
     Dates: start: 20130329, end: 20130329

REACTIONS (5)
  - Dyspnoea [Unknown]
  - Blood pressure decreased [Unknown]
  - Nasopharyngitis [Unknown]
  - Hyperhidrosis [Unknown]
  - Pallor [Unknown]
